FAERS Safety Report 7314561-6 (Version None)
Quarter: 2011Q1

REPORT INFORMATION
  Report Type: 
  Country: None (occurrence: None)
  Receive Date: 20110225
  Receipt Date: 20101018
  Transmission Date: 20110831
  Serious: No
  Sender: FDA-Public Use
  Company Number: US-MYLANLABS-2010S1018195

PATIENT
  Age: 15 Year
  Sex: Male

DRUGS (4)
  1. AMNESTEEM [Suspect]
     Route: 048
     Dates: start: 20100621, end: 20100921
  2. AMNESTEEM [Suspect]
     Indication: ACNE
     Route: 048
     Dates: start: 20100621, end: 20100921
  3. AMNESTEEM [Suspect]
     Indication: ACNE CYSTIC
     Route: 048
     Dates: start: 20100621, end: 20100921
  4. AMNESTEEM [Suspect]
     Route: 048
     Dates: start: 20100621, end: 20100921

REACTIONS (3)
  - IRRITABILITY [None]
  - ABNORMAL BEHAVIOUR [None]
  - INSOMNIA [None]
